FAERS Safety Report 7802199-3 (Version None)
Quarter: 2011Q4

REPORT INFORMATION
  Report Type: 
  Country: None (occurrence: None)
  Receive Date: 20111007
  Receipt Date: 20110930
  Transmission Date: 20120403
  Serious: Yes (Other)
  Sender: FDA-Public Use
  Company Number: US-JNJFOC-20110607335

PATIENT
  Sex: Female

DRUGS (5)
  1. PREDNISONE [Suspect]
     Indication: STEROID THERAPY
     Route: 065
  2. LEVAQUIN [Suspect]
     Indication: RESPIRATORY TRACT INFECTION
     Route: 048
     Dates: start: 20090301
  3. LEVAQUIN [Suspect]
     Route: 048
     Dates: start: 20090501
  4. AVELOX [Suspect]
     Indication: INFECTION
     Route: 065
  5. CIPROFLOXACIN [Suspect]
     Indication: INFECTION
     Route: 048

REACTIONS (2)
  - TENOSYNOVITIS [None]
  - ROTATOR CUFF SYNDROME [None]
